FAERS Safety Report 5714196-2 (Version None)
Quarter: 2008Q2

REPORT INFORMATION
  Report Type: 
  Country: None (occurrence: None)
  Receive Date: 20080423
  Receipt Date: 20071214
  Transmission Date: 20081010
  Serious: No
  Sender: FDA-Public Use
  Company Number: US-KINGPHARMUSA00001-K200701617

PATIENT

DRUGS (5)
  1. SKELAXIN [Suspect]
     Indication: BACK PAIN
     Dosage: 800 MG, BID
     Route: 048
     Dates: start: 20071210, end: 20071214
  2. SKELAXIN [Suspect]
     Indication: MUSCLE SPASMS
  3. PROPRANOLOL [Concomitant]
     Dosage: 20 MG, QD
     Route: 048
  4. LIPITOR [Concomitant]
     Dosage: 20 MG, QD
     Route: 048
  5. DYAZIDE [Concomitant]
     Dosage: UNK, QD

REACTIONS (5)
  - HAEMATOCHEZIA [None]
  - HEADACHE [None]
  - RECTAL HAEMORRHAGE [None]
  - SOMNOLENCE [None]
  - STOMACH DISCOMFORT [None]
